FAERS Safety Report 20208480 (Version 1)
Quarter: 2021Q4

REPORT INFORMATION
  Report Type: Spontaneous
  Country: CO (occurrence: CO)
  Receive Date: 20211220
  Receipt Date: 20211220
  Transmission Date: 20220303
  Serious: No
  Sender: FDA-Public Use
  Company Number: CO-PFIZER INC-2020446433

PATIENT
  Age: 14 Year
  Sex: Female

DRUGS (5)
  1. GENOTROPIN [Suspect]
     Active Substance: SOMATROPIN
     Indication: Growth disorder
     Dosage: 1.8 MG, DAILY (EVERY NIGHT)
     Route: 058
  2. GENOTROPIN [Suspect]
     Active Substance: SOMATROPIN
     Dosage: 0.8
     Dates: start: 20191105
  3. GENOTROPIN [Suspect]
     Active Substance: SOMATROPIN
     Dosage: 2.2
  4. GENOTROPIN [Suspect]
     Active Substance: SOMATROPIN
     Dosage: 2.4 EVERY NIGHT
  5. LEVOTHYROXINE [Concomitant]
     Active Substance: LEVOTHYROXINE
     Indication: Hypothyroidism
     Dosage: 75 MG, DAILY IN THE MORNING ON AN EMPTY STOMACH

REACTIONS (4)
  - Aggression [Unknown]
  - Increased appetite [Unknown]
  - Device information output issue [Unknown]
  - Drug dose omission by device [Unknown]

NARRATIVE: CASE EVENT DATE: 20201107
